FAERS Safety Report 4784407-9 (Version None)
Quarter: 2005Q3

REPORT INFORMATION
  Report Type: 
  Country: None (occurrence: None)
  Receive Date: 20050930
  Receipt Date: 20031029
  Transmission Date: 20060218
  Serious: Yes (Congenital Anomaly)
  Sender: FDA-Public Use
  Company Number: GB-ABBOTT-03P-167-0239077-00

PATIENT
  Sex: Male

DRUGS (1)
  1. EPILIM [Suspect]
     Indication: DRUG EXPOSURE DURING PREGNANCY

REACTIONS (21)
  - ABNORMAL BEHAVIOUR [None]
  - ASTHMA [None]
  - AUTISM [None]
  - CLUMSINESS [None]
  - COORDINATION ABNORMAL [None]
  - DEVELOPMENTAL DELAY [None]
  - DIABETES MELLITUS [None]
  - DIFFICULTY IN WALKING [None]
  - DISTURBANCE IN ATTENTION [None]
  - EAR INFECTION [None]
  - ENURESIS [None]
  - FACIAL DYSMORPHISM [None]
  - FOETAL VALPROATE SYNDROME [None]
  - GRAND MAL CONVULSION [None]
  - HEARING IMPAIRED [None]
  - LEARNING DISORDER [None]
  - MOTOR DYSFUNCTION [None]
  - SPEECH DISORDER DEVELOPMENTAL [None]
  - SPINA BIFIDA OCCULTA [None]
  - SPINAL COLUMN STENOSIS [None]
  - VISUAL DISTURBANCE [None]
